FAERS Safety Report 18243038 (Version 1)
Quarter: 2020Q3

REPORT INFORMATION
  Report Type: Spontaneous
  Country: US (occurrence: US)
  Receive Date: 20200908
  Receipt Date: 20200908
  Transmission Date: 20201103
  Serious: Yes (Other)
  Sender: FDA-Public Use
  Company Number: None

PATIENT
  Age: 44 Year
  Sex: Female

DRUGS (2)
  1. VITAMIN D [Concomitant]
     Active Substance: VITAMIN D NOS
  2. CYMBALTA [Suspect]
     Active Substance: DULOXETINE HYDROCHLORIDE
     Indication: FIBROMYALGIA
     Dosage: ?          QUANTITY:1 CAPSULE(S);?
     Route: 048
     Dates: start: 20181001

REACTIONS (8)
  - Blood cholesterol increased [None]
  - Dizziness [None]
  - Hepatic enzyme increased [None]
  - Withdrawal syndrome [None]
  - Anxiety [None]
  - Irritability [None]
  - Weight increased [None]
  - Hypersomnia [None]

NARRATIVE: CASE EVENT DATE: 20200908
